FAERS Safety Report 12899664 (Version 1)
Quarter: 2016Q4

REPORT INFORMATION
  Report Type: Spontaneous
  Country: US (occurrence: US)
  Receive Date: 20161031
  Receipt Date: 20161031
  Transmission Date: 20170207
  Serious: Yes (Other)
  Sender: FDA-Public Use
  Company Number: None

PATIENT
  Age: 60 Year
  Sex: Female
  Weight: 59.85 kg

DRUGS (11)
  1. PROZAC [Concomitant]
     Active Substance: FLUOXETINE HYDROCHLORIDE
  2. TYLENOL WITH CODEINE [Concomitant]
     Active Substance: ACETAMINOPHEN\CODEINE PHOSPHATE
  3. RESTASIS [Suspect]
     Active Substance: CYCLOSPORINE
     Indication: DRY EYE
     Dosage: ?          QUANTITY:1 DROP(S);?EVERY 12 HOURS
     Route: 047
     Dates: start: 20160831, end: 20160907
  4. ELAVIL [Concomitant]
     Active Substance: AMITRIPTYLINE HYDROCHLORIDE
  5. ALIVE 50+ VITAMIN [Concomitant]
  6. TYLENOL [Concomitant]
     Active Substance: ACETAMINOPHEN
  7. ACTIVELLA [Concomitant]
     Active Substance: ESTRADIOL\NORETHINDRONE ACETATE
  8. NORVASC [Concomitant]
     Active Substance: AMLODIPINE BESYLATE
  9. MANNATECH PROBIOTICS [Concomitant]
  10. SKELAXIN [Concomitant]
     Active Substance: METAXALONE
  11. FLAXSEED [Concomitant]
     Active Substance: FLAX SEED

REACTIONS (4)
  - Product quality issue [None]
  - Eye pruritus [None]
  - Eye irritation [None]
  - Product formulation issue [None]

NARRATIVE: CASE EVENT DATE: 20160831
